FAERS Safety Report 8769360 (Version 1)
Quarter: 2012Q4

REPORT INFORMATION
  Report Type: 
  Country: US (occurrence: US)
  Receive Date: 20120905
  Receipt Date: 20120905
  Transmission Date: 20130627
  Serious: Yes (Other)
  Sender: FDA-Public Use
  Company Number: US-JNJFOC-20120814733

PATIENT
  Age: 3 Month
  Sex: Male

DRUGS (2)
  1. HYDROCORTISONE [Suspect]
     Indication: DERMATITIS DIAPER
     Route: 061
  2. CLOBETASOL [Suspect]
     Indication: DERMATITIS DIAPER
     Dosage: 4 tubes, 15 gm each for 6 weeks
     Route: 061

REACTIONS (3)
  - Cushing^s syndrome [Recovering/Resolving]
  - Drug administered to patient of inappropriate age [Unknown]
  - Drug ineffective for unapproved indication [Unknown]
